FAERS Safety Report 14200283 (Version 5)
Quarter: 2018Q1

REPORT INFORMATION
  Report Type: Report from Study
  Country: US (occurrence: US)
  Receive Date: 20171117
  Receipt Date: 20180307
  Transmission Date: 20180508
  Serious: Yes (Death)
  Sender: FDA-Public Use
  Company Number: US-ROCHE-2025609

PATIENT
  Age: 63 Year
  Sex: Female
  Weight: 39.9 kg

DRUGS (60)
  1. BUSPIRONE [Concomitant]
     Active Substance: BUSPIRONE HYDROCHLORIDE
     Indication: ANXIETY
     Route: 048
     Dates: start: 201508
  2. MIRALAX [Concomitant]
     Active Substance: POLYETHYLENE GLYCOL 3350
     Indication: CONSTIPATION
     Route: 048
     Dates: start: 20161025
  3. NAPROXEN. [Concomitant]
     Active Substance: NAPROXEN
     Indication: BONE PAIN
     Route: 048
     Dates: start: 20161101
  4. PALONOSETRON. [Concomitant]
     Active Substance: PALONOSETRON HYDROCHLORIDE
     Dosage: MOST RECENT DOSE 15/NOV/2016
     Route: 042
     Dates: start: 20160913, end: 20160913
  5. DEXAMETHASONE. [Concomitant]
     Active Substance: DEXAMETHASONE
     Dosage: MOST RECENT DOSE 15/NOV/2016
     Route: 065
     Dates: start: 20160913, end: 20160913
  6. FAMOTIDINE. [Concomitant]
     Active Substance: FAMOTIDINE
     Dosage: MOST RECENT DOSE 15/NOV/2016
     Route: 042
     Dates: start: 20161004, end: 20161004
  7. ADVAIR HFA [Concomitant]
     Active Substance: FLUTICASONE PROPIONATE\SALMETEROL XINAFOATE
     Indication: CHRONIC OBSTRUCTIVE PULMONARY DISEASE
     Dosage: 1 PUFF, INHALED
     Route: 065
     Dates: start: 2001
  8. THEOPHYLLINE [Concomitant]
     Active Substance: THEOPHYLLINE ANHYDROUS
     Indication: PRODUCTIVE COUGH
     Route: 048
     Dates: start: 1998
  9. MONTELUKAST [Concomitant]
     Active Substance: MONTELUKAST SODIUM
     Indication: DYSPNOEA
     Route: 048
     Dates: start: 2001
  10. ALBUTEROL. [Concomitant]
     Active Substance: ALBUTEROL
     Indication: CHRONIC OBSTRUCTIVE PULMONARY DISEASE
     Dosage: 1 PUFF, INHALED
     Route: 065
     Dates: start: 2001
  11. SWISH AND SPIT SOLUTION (DEXAMETHASONE/DIPHENHYDRAMINE/VISCOUS LIDOCAI [Concomitant]
     Indication: STOMATITIS
     Dosage: GEL CLAIR 1 APPLICATION
     Route: 065
     Dates: start: 20160914
  12. DULOXETINE. [Concomitant]
     Active Substance: DULOXETINE
     Indication: DEPRESSION
     Route: 048
     Dates: start: 20161004
  13. CLARITIN [Concomitant]
     Active Substance: LORATADINE
     Indication: BONE PAIN
     Route: 048
     Dates: start: 20161101
  14. HABITROL [Concomitant]
     Active Substance: NICOTINE
     Indication: SMOKING CESSATION THERAPY
     Dosage: 1 PATCH DAILY
     Route: 062
     Dates: start: 20160908
  15. FOSAPREPITANT [Concomitant]
     Active Substance: FOSAPREPITANT
     Dosage: MOST RECENT DOSE 15/NOV/2016
     Route: 042
     Dates: start: 20160913, end: 20160913
  16. BEVACIZUMAB. [Suspect]
     Active Substance: BEVACIZUMAB
     Indication: NON-SMALL CELL LUNG CANCER STAGE IV
     Dosage: DATE OF MOST RECENT DOSE (588 MG ONCE PER 3 WEEKS): 03/JAN/2017
     Route: 042
     Dates: start: 20160913
  17. ADVAIR HFA [Concomitant]
     Active Substance: FLUTICASONE PROPIONATE\SALMETEROL XINAFOATE
     Indication: DYSPNOEA
  18. HYDRALAZINE [Concomitant]
     Active Substance: HYDRALAZINE HYDROCHLORIDE
     Indication: HYPERTENSION
     Route: 048
     Dates: start: 2001
  19. MORPHINE IMMEDIATE RELEASE [Concomitant]
     Indication: BACK PAIN
     Route: 048
     Dates: start: 2008
  20. MORPHINE [Concomitant]
     Active Substance: MORPHINE
     Indication: NECK PAIN
  21. OMEPRAZOLE. [Concomitant]
     Active Substance: OMEPRAZOLE
     Indication: DYSPEPSIA
     Route: 048
     Dates: start: 2009
  22. POTASSIUM CHLORIDE. [Concomitant]
     Active Substance: POTASSIUM CHLORIDE
     Indication: HYPOKALAEMIA
     Route: 048
     Dates: start: 2013
  23. ALBUTEROL. [Concomitant]
     Active Substance: ALBUTEROL
     Indication: DYSPNOEA
  24. ONDANSETRON [Concomitant]
     Active Substance: ONDANSETRON
     Indication: NAUSEA
     Route: 048
     Dates: start: 20160916
  25. OXYCODONE HYDROCHLORIDE. [Concomitant]
     Active Substance: OXYCODONE HYDROCHLORIDE
     Indication: BACK PAIN
     Route: 048
     Dates: start: 20170421
  26. GELCLAIR (UNITED STATES) [Concomitant]
     Indication: DRY MOUTH
     Dosage: 1APP SWISH/SPIT
     Route: 065
     Dates: start: 20171017
  27. OXYGEN. [Concomitant]
     Active Substance: OXYGEN
     Indication: CHRONIC OBSTRUCTIVE PULMONARY DISEASE
     Dosage: INHALED
     Route: 065
     Dates: start: 2001
  28. NEULASTA [Concomitant]
     Active Substance: PEGFILGRASTIM
     Route: 065
     Dates: start: 20161004, end: 20161004
  29. DEXAMETHASONE. [Concomitant]
     Active Substance: DEXAMETHASONE
     Route: 065
     Dates: start: 20161004, end: 20161004
  30. FOSAPREPITANT [Concomitant]
     Active Substance: FOSAPREPITANT
     Route: 042
     Dates: start: 20161004, end: 20161004
  31. NORMAL SALINE [Concomitant]
     Active Substance: SODIUM CHLORIDE
     Route: 042
     Dates: start: 20160914, end: 20160914
  32. CARBOPLATIN. [Suspect]
     Active Substance: CARBOPLATIN
     Indication: NON-SMALL CELL LUNG CANCER STAGE IV
     Dosage: AREA UNDER THE CONCENTRATION-TIME CURVE (AUC) 6 MILLIGRAMS PER MILLILITER PER MINUTE (MG/ML/MIN) ?DA
     Route: 042
     Dates: start: 20160913
  33. DOCUSATE SODIUM. [Concomitant]
     Active Substance: DOCUSATE SODIUM
     Indication: CONSTIPATION
     Route: 048
     Dates: start: 1996
  34. TIZANIDINE. [Concomitant]
     Active Substance: TIZANIDINE
     Indication: MUSCLE SPASMS
  35. GABAPENTIN. [Concomitant]
     Active Substance: GABAPENTIN
     Indication: NEUROPATHY PERIPHERAL
     Route: 048
     Dates: start: 20170103
  36. OXYCODONE HYDROCHLORIDE. [Concomitant]
     Active Substance: OXYCODONE HYDROCHLORIDE
     Indication: HEADACHE
  37. SYNTHROID [Concomitant]
     Active Substance: LEVOTHYROXINE SODIUM
     Indication: HYPOTHYROIDISM
     Route: 048
     Dates: start: 20170510
  38. FLU SHOT [Concomitant]
     Active Substance: INFLUENZA VIRUS VACCINE
     Dosage: PREVENTATIVE
     Route: 065
     Dates: start: 20171017, end: 20171017
  39. NEULASTA [Concomitant]
     Active Substance: PEGFILGRASTIM
     Dosage: MOST RECENT DOSE 15/NOV/2016
     Route: 065
     Dates: start: 20160913, end: 20160913
  40. PALONOSETRON. [Concomitant]
     Active Substance: PALONOSETRON HYDROCHLORIDE
     Route: 042
     Dates: start: 20161004, end: 20161004
  41. DIPHENHYDRAMINE. [Concomitant]
     Active Substance: DIPHENHYDRAMINE
     Route: 042
     Dates: start: 20161004, end: 20161004
  42. RANITIDINE. [Concomitant]
     Active Substance: RANITIDINE
     Route: 042
     Dates: start: 20160913, end: 20160913
  43. PACLITAXEL. [Suspect]
     Active Substance: PACLITAXEL
     Indication: NON-SMALL CELL LUNG CANCER STAGE IV
     Dosage: DATE OF MOST RECENT DOSE (200 MG ONCE PER 3 WEEKS): 15/NOV/2016
     Route: 042
     Dates: start: 20160913
  44. LORAZEPAM. [Concomitant]
     Active Substance: LORAZEPAM
     Indication: ANXIETY
     Route: 048
     Dates: start: 201508
  45. MORPHINE [Concomitant]
     Active Substance: MORPHINE
     Indication: MUSCULOSKELETAL PAIN
  46. METOPROLOL. [Concomitant]
     Active Substance: METOPROLOL
     Indication: HYPERTENSION
     Route: 048
     Dates: start: 2015
  47. TIZANIDINE. [Concomitant]
     Active Substance: TIZANIDINE
     Indication: BACK PAIN
     Dosage: THRICE A DAY
     Route: 048
     Dates: start: 20160801
  48. OXYCODONE HYDROCHLORIDE. [Concomitant]
     Active Substance: OXYCODONE HYDROCHLORIDE
     Indication: NECK PAIN
  49. MIRALAX [Concomitant]
     Active Substance: POLYETHYLENE GLYCOL 3350
     Indication: CONSTIPATION
     Dosage: DAILY
     Route: 048
     Dates: start: 20161025
  50. ATEZOLIZUMAB. [Suspect]
     Active Substance: ATEZOLIZUMAB
     Indication: NON-SMALL CELL LUNG CANCER STAGE IV
     Dosage: DATE OF MOST RECENT DOSE (1200 MG ONCE PER 3 WEEKS): 24/OCT/2017
     Route: 042
     Dates: start: 20160913
  51. MORPHINE IMMEDIATE RELEASE [Concomitant]
     Indication: NECK PAIN
  52. MORPHINE IMMEDIATE RELEASE [Concomitant]
     Indication: MUSCULOSKELETAL PAIN
  53. GUAIFENESIN. [Concomitant]
     Active Substance: GUAIFENESIN
     Indication: PRODUCTIVE COUGH
     Route: 048
     Dates: start: 2001
  54. SWISH AND SPIT SOLUTION (DEXAMETHASONE/DIPHENHYDRAMINE/VISCOUS LIDOCAI [Concomitant]
     Indication: DRY MOUTH
  55. CLARITIN [Concomitant]
     Active Substance: LORATADINE
     Indication: OROPHARYNGEAL PAIN
     Route: 048
     Dates: start: 20170510
  56. DIPHENHYDRAMINE. [Concomitant]
     Active Substance: DIPHENHYDRAMINE
     Dosage: MOST RECENT DOSE 15/NOV/2016
     Route: 042
     Dates: start: 20160913, end: 20160913
  57. MORPHINE [Concomitant]
     Active Substance: MORPHINE
     Indication: BACK PAIN
     Route: 048
     Dates: start: 2008
  58. SWISH AND SPIT SOLUTION (DEXAMETHASONE/DIPHENHYDRAMINE/VISCOUS LIDOCAI [Concomitant]
     Indication: OROPHARYNGEAL PAIN
  59. OXYCODONE HYDROCHLORIDE. [Concomitant]
     Active Substance: OXYCODONE HYDROCHLORIDE
     Indication: MUSCULOSKELETAL PAIN
  60. DULOXETINE. [Concomitant]
     Active Substance: DULOXETINE
     Indication: DEPRESSION
     Dosage: TWICE DAILY
     Route: 048
     Dates: start: 20161004

REACTIONS (1)
  - Death [Fatal]

NARRATIVE: CASE EVENT DATE: 20171110
